FAERS Safety Report 10543271 (Version 1)
Quarter: 2014Q4

REPORT INFORMATION
  Report Type: Spontaneous
  Country: US (occurrence: None)
  Receive Date: 20141010
  Receipt Date: 20141010
  Transmission Date: 20150529
  Serious: Yes (Other)
  Sender: FDA-Public Use
  Company Number: 163-POMAL-14055517

PATIENT
  Age: 83 Year
  Sex: Male

DRUGS (1)
  1. POMALYST [Suspect]
     Active Substance: POMALIDOMIDE
     Indication: PLASMA CELL MYELOMA
     Dosage: 21 IN 21 D
     Route: 048
     Dates: start: 20140502, end: 20140523

REACTIONS (4)
  - Dysstasia [None]
  - Platelet count decreased [None]
  - Musculoskeletal chest pain [None]
  - Dyspnoea [None]

NARRATIVE: CASE EVENT DATE: 201405
